FAERS Safety Report 5368209-0 (Version None)
Quarter: 2007Q2

REPORT INFORMATION
  Report Type: 
  Country: None (occurrence: None)
  Receive Date: 20070625
  Receipt Date: 20070619
  Transmission Date: 20071010
  Serious: Yes (Life-Threatening)
  Sender: FDA-Public Use
  Company Number: PHBS2007AT09485

PATIENT
  Age: 83 Year
  Sex: Female

DRUGS (6)
  1. TEGRETOL [Suspect]
     Route: 065
  2. VOLTAREN [Suspect]
     Route: 065
  3. CITALOPRAM HYDROBROMIDE [Suspect]
     Route: 065
  4. FUROSPIROBENE [Suspect]
     Route: 065
  5. ACECOMB [Suspect]
     Route: 065
  6. ACEMIN [Suspect]
     Route: 065

REACTIONS (6)
  - BLOOD SODIUM DECREASED [None]
  - COGNITIVE DISORDER [None]
  - DELIRIUM [None]
  - HYPONATRAEMIA [None]
  - INAPPROPRIATE ANTIDIURETIC HORMONE SECRETION [None]
  - VOMITING [None]
